FAERS Safety Report 6524635-5 (Version None)
Quarter: 2010Q1

REPORT INFORMATION
  Report Type: 
  Country: None (occurrence: None)
  Receive Date: 20100104
  Receipt Date: 20091230
  Transmission Date: 20100710
  Serious: Yes (Death)
  Sender: FDA-Public Use
  Company Number: PHEH2009US18226

PATIENT
  Sex: Male

DRUGS (6)
  1. EXJADE [Suspect]
     Indication: MYELODYSPLASTIC SYNDROME
     Dosage: 1500 MG, QD
     Route: 048
     Dates: start: 20091113
  2. ATIVAN [Concomitant]
     Dosage: 0.5 MG, QID
     Route: 048
  3. REGLAN [Concomitant]
     Dosage: 10 MG, QID
     Route: 048
     Dates: start: 20090416
  4. MEGACE [Concomitant]
     Dosage: 400 MG, BID
     Route: 048
     Dates: start: 20090420
  5. LORTAB [Concomitant]
     Dosage: 75 MG, Q 4-6 HOURS
     Route: 048
     Dates: start: 20090622
  6. PROZAC [Concomitant]
     Dosage: 20 MG, BID
     Route: 048
     Dates: start: 20090708

REACTIONS (6)
  - APNOEA [None]
  - FALL [None]
  - HAEMORRHAGE INTRACRANIAL [None]
  - HEAD INJURY [None]
  - MALIGNANT NEOPLASM PROGRESSION [None]
  - THROMBOCYTOPENIA [None]
